FAERS Safety Report 20231688 (Version 1)
Quarter: 2021Q4

REPORT INFORMATION
  Report Type: Spontaneous
  Country: US (occurrence: US)
  Receive Date: 20211227
  Receipt Date: 20211227
  Transmission Date: 20220303
  Serious: No
  Sender: FDA-Public Use
  Company Number: US-AVEO ONCOLOGY-2021-AVEO-US003668

PATIENT

DRUGS (4)
  1. FOTIVDA [Suspect]
     Active Substance: TIVOZANIB HYDROCHLORIDE
     Indication: Renal cell carcinoma
     Dosage: 1.34 MG, DAILY FOR 21 DAYS, THEN 7 DAYS OFF
     Route: 048
     Dates: start: 20211020
  2. NORCO [Concomitant]
     Active Substance: ACETAMINOPHEN\HYDROCODONE BITARTRATE
  3. SUTENT [Concomitant]
     Active Substance: SUNITINIB MALATE
  4. VALIUM [Concomitant]
     Active Substance: DIAZEPAM

REACTIONS (7)
  - Fatigue [Unknown]
  - Dyspepsia [Unknown]
  - Hyperhidrosis [Unknown]
  - Chills [Unknown]
  - Vomiting [Unknown]
  - Dizziness [Unknown]
  - Dysstasia [Unknown]
